FAERS Safety Report 14528837 (Version 4)
Quarter: 2018Q1

REPORT INFORMATION
  Report Type: Report from Study
  Country: DE (occurrence: DE)
  Receive Date: 20180214
  Receipt Date: 20180329
  Transmission Date: 20180509
  Serious: Yes (Life-Threatening, Hospitalization, Other)
  Sender: FDA-Public Use
  Company Number: DE-VELOXIS PHARMACEUTICALS-2041924

PATIENT
  Age: 25 Year
  Sex: Male
  Weight: 55 kg

DRUGS (6)
  1. ENVARSUS XR [Suspect]
     Active Substance: TACROLIMUS
     Indication: COLITIS ULCERATIVE
     Dates: start: 20170630, end: 20170717
  2. HUMIRA [Suspect]
     Active Substance: ADALIMUMAB
     Route: 058
     Dates: start: 20170523
  3. PREDNISOLON /00016201/ [Concomitant]
     Active Substance: PREDNISOLONE
     Dates: start: 20170418, end: 20170420
  4. REMICADE [Suspect]
     Active Substance: INFLIXIMAB
     Dates: start: 20150812
  5. MEZAVANT [Concomitant]
     Active Substance: MESALAMINE
     Dates: start: 20150715, end: 20170717
  6. INFLIXIMAB [Concomitant]
     Active Substance: INFLIXIMAB

REACTIONS (4)
  - Diarrhoea [Recovered/Resolved]
  - Drug ineffective [Recovered/Resolved]
  - Intentional product use issue [Unknown]
  - Weight decreased [Recovered/Resolved]
